FAERS Safety Report 22273681 (Version 2)
Quarter: 2023Q2

REPORT INFORMATION
  Report Type: Spontaneous
  Country: US (occurrence: None)
  Receive Date: 20230502
  Receipt Date: 20230517
  Transmission Date: 20230721
  Serious: Yes (Other)
  Sender: FDA-Public Use
  Company Number: US-ROCHE-3339526

PATIENT
  Age: 82 Year
  Sex: Female
  Weight: 70.824 kg

DRUGS (8)
  1. LUCENTIS [Suspect]
     Active Substance: RANIBIZUMAB
     Indication: Neovascular age-related macular degeneration
     Dosage: MONTHLY FOR 1 YEAR THEN 1-3 MONTHS
     Route: 050
     Dates: start: 20170227
  2. LEVOTHYROXINE [Concomitant]
     Active Substance: LEVOTHYROXINE
     Dosage: TAKES IN THE MORNING
     Route: 048
     Dates: start: 1993
  3. FOCUS SELECT AREDS2 [Concomitant]
     Indication: Macular degeneration
     Route: 048
     Dates: start: 2015
  4. MAGNESIUM [Concomitant]
     Active Substance: MAGNESIUM
     Dosage: TAKES 4 TABLETS A DAY
     Route: 048
     Dates: start: 2022
  5. VITAMIN D3 [Concomitant]
     Active Substance: CHOLECALCIFEROL
     Indication: Vitamin D decreased
     Dosage: DOSE IN THE WINTER MONTHS
     Route: 048
  6. VITAMIN D3 [Concomitant]
     Active Substance: CHOLECALCIFEROL
     Dosage: DOSE IN THE WARMER MONTHS
     Route: 048
  7. QUERCETIN COMPLEX (UNITED STATES) [Concomitant]
     Indication: Hypersensitivity
     Dosage: CONTAINS QUERCETIN, BROMELAIN AND VITAMIN C
     Route: 048
  8. QUERCETIN COMPLEX (UNITED STATES) [Concomitant]
     Indication: Asthma

REACTIONS (15)
  - Loss of consciousness [Recovered/Resolved]
  - Fall [Recovered/Resolved]
  - Dysarthria [Recovered/Resolved]
  - Memory impairment [Recovered/Resolved]
  - Ocular hyperaemia [Not Recovered/Not Resolved]
  - Lacrimation increased [Not Recovered/Not Resolved]
  - Dry eye [Not Recovered/Not Resolved]
  - Eye pain [Not Recovered/Not Resolved]
  - Photophobia [Not Recovered/Not Resolved]
  - Pain [Not Recovered/Not Resolved]
  - Musculoskeletal stiffness [Not Recovered/Not Resolved]
  - Hypoaesthesia [Not Recovered/Not Resolved]
  - Dry age-related macular degeneration [Not Recovered/Not Resolved]
  - Skin laceration [Unknown]
  - Off label use [Unknown]

NARRATIVE: CASE EVENT DATE: 20220101
